FAERS Safety Report 23271351 (Version 7)
Quarter: 2024Q1

REPORT INFORMATION
  Report Type: Report from Study
  Country: US (occurrence: US)
  Receive Date: 20231207
  Receipt Date: 20240329
  Transmission Date: 20240410
  Serious: Yes (Hospitalization, Other)
  Sender: FDA-Public Use
  Company Number: US-ALNYLAM PHARMACEUTICALS, INC.-ALN-2023-006470

PATIENT

DRUGS (2)
  1. AMVUTTRA [Suspect]
     Active Substance: VUTRISIRAN
     Indication: Hereditary neuropathic amyloidosis
     Dosage: 25 MILLIGRAM, Q3M (25MG/0.5 ML)
     Route: 058
     Dates: start: 20230504, end: 20230504
  2. AMVUTTRA [Suspect]
     Active Substance: VUTRISIRAN
     Dosage: UNK
     Route: 065
     Dates: start: 20230825, end: 20230825

REACTIONS (4)
  - Heart transplant [Unknown]
  - Therapy interrupted [Unknown]
  - Ventricular assist device insertion [Unknown]
  - Pain [Unknown]

NARRATIVE: CASE EVENT DATE: 20230101
